FAERS Safety Report 25723769 (Version 1)
Quarter: 2025Q3

REPORT INFORMATION
  Report Type: Report from Study
  Country: EU (occurrence: EU)
  Receive Date: 20250825
  Receipt Date: 20250825
  Transmission Date: 20251021
  Serious: Yes (Other)
  Sender: NOVARTIS
  Company Number: EU-002147023-NVSC2025DE132138

PATIENT
  Sex: Female
  Weight: 66.8 kg

DRUGS (3)
  1. KISQALI [Suspect]
     Active Substance: RIBOCICLIB SUCCINATE
     Indication: Hormone receptor positive HER2 negative breast cancer
     Dosage: 400 MG, QD (TOTAL DAILY DOSE,21 DAYS DAILY INTAKE, 7 DAYS PAUSE)
     Route: 048
     Dates: start: 20250707
  2. LETROZOLE [Suspect]
     Active Substance: LETROZOLE
     Indication: Product used for unknown indication
     Dosage: 2.5 MG, QD (TOTAL DAILY DOSE)
     Route: 048
     Dates: start: 20250707
  3. GONADORELIN DIACETATE TETRAHYDRATE [Concomitant]
     Active Substance: GONADORELIN DIACETATE TETRAHYDRATE
     Indication: Hormone receptor positive HER2 negative breast cancer
     Dosage: 6.3 MG, QMO
     Route: 065
     Dates: start: 20250204

REACTIONS (1)
  - Polyneuropathy [Not Recovered/Not Resolved]

NARRATIVE: CASE EVENT DATE: 20250731
